FAERS Safety Report 7825738-5 (Version None)
Quarter: 2011Q4

REPORT INFORMATION
  Report Type: 
  Country: None (occurrence: None)
  Receive Date: 20111019
  Receipt Date: 20111007
  Transmission Date: 20120403
  Serious: Yes (Other)
  Sender: FDA-Public Use
  Company Number: PHHY2011FR75486

PATIENT
  Sex: Male
  Weight: 123 kg

DRUGS (8)
  1. EZETIMIBE [Concomitant]
     Indication: HYPERCHOLESTEROLAEMIA
     Dosage: 1 DF, QD
     Route: 048
  2. EXFORGE [Concomitant]
     Dosage: UNK
     Dates: end: 20110627
  3. EXFORGE [Concomitant]
     Dates: start: 20110714
  4. PIASCLEDINE [Concomitant]
     Indication: OSTEOARTHRITIS
     Dosage: 1 DF, DAILY
     Route: 048
  5. ZOLPIDEM [Concomitant]
     Indication: SLEEP DISORDER
     Dosage: 1 DF, UNK
     Route: 048
  6. RASILEZ [Suspect]
     Indication: HYPERTENSION
     Dosage: 300 MG, QD
     Route: 048
     Dates: start: 20110627, end: 20110714
  7. AMLODIPINE BESYLATE AND OLMESARTAN MEDOXOMIL [Concomitant]
     Dosage: 1 DF, QD
  8. FLUDEX - SLOW RELEASE [Concomitant]
     Indication: HYPERTENSION
     Dosage: 1 DF, QD
     Route: 048

REACTIONS (12)
  - ARTHRALGIA [None]
  - JAUNDICE [None]
  - PRURITUS [None]
  - LIVER DISORDER [None]
  - NAUSEA [None]
  - DECREASED APPETITE [None]
  - DIARRHOEA [None]
  - CHOLELITHIASIS [None]
  - URINE COLOUR ABNORMAL [None]
  - FAECES DISCOLOURED [None]
  - FATIGUE [None]
  - CELL DEATH [None]
